FAERS Safety Report 14692337 (Version 2)
Quarter: 2018Q2

REPORT INFORMATION
  Report Type: Spontaneous
  Country: US (occurrence: US)
  Receive Date: 20180329
  Receipt Date: 20180504
  Transmission Date: 20180711
  Serious: No
  Sender: FDA-Public Use
  Company Number: US-ASTRAZENECA-2018SE29038

PATIENT
  Age: 4191 Week
  Sex: Female
  Weight: 77.1 kg

DRUGS (2)
  1. PULMICORT FLEXHALER [Suspect]
     Active Substance: BUDESONIDE
     Indication: ASTHMA
     Route: 055
     Dates: end: 20180226
  2. PULMICORT FLEXHALER [Suspect]
     Active Substance: BUDESONIDE
     Indication: ASTHMA
     Route: 055
     Dates: start: 20161013

REACTIONS (3)
  - Intentional product misuse [Unknown]
  - Product quality issue [Unknown]
  - Foreign body aspiration [Unknown]

NARRATIVE: CASE EVENT DATE: 20180226
